FAERS Safety Report 5883866-8 (Version None)
Quarter: 2008Q3

REPORT INFORMATION
  Report Type: 
  Country: None (occurrence: None)
  Receive Date: 20080915
  Receipt Date: 20080909
  Transmission Date: 20090109
  Serious: Yes (Other)
  Sender: FDA-Public Use
  Company Number: A0747363A

PATIENT
  Age: 40 Year
  Sex: Female

DRUGS (2)
  1. ZYBAN [Suspect]
     Indication: DRUG USE FOR UNKNOWN INDICATION
     Dosage: 6TAB SINGLE DOSE
  2. CITALOPRAM HYDROBROMIDE [Suspect]
     Dosage: 450MG SINGLE DOSE

REACTIONS (6)
  - AGITATION [None]
  - CONVULSION [None]
  - INTENTIONAL OVERDOSE [None]
  - SOMNOLENCE [None]
  - SOPOR [None]
  - SUICIDE ATTEMPT [None]
